FAERS Safety Report 7147893-5 (Version None)
Quarter: 2010Q4

REPORT INFORMATION
  Report Type: 
  Country: None (occurrence: None)
  Receive Date: 20101209
  Receipt Date: 20101201
  Transmission Date: 20110411
  Serious: Yes (Other)
  Sender: FDA-Public Use
  Company Number: US-JNJFOC-20100804524

PATIENT
  Sex: Female
  Weight: 53.52 kg

DRUGS (1)
  1. RISPERDAL CONSTA [Suspect]
     Indication: AFFECTIVE DISORDER
     Route: 030

REACTIONS (2)
  - FLUID RETENTION [None]
  - WEIGHT INCREASED [None]
